FAERS Safety Report 6444361-0 (Version None)
Quarter: 2009Q4

REPORT INFORMATION
  Report Type: 
  Country: None (occurrence: None)
  Receive Date: 20091118
  Receipt Date: 20091112
  Transmission Date: 20100525
  Serious: Yes (Hospitalization)
  Sender: FDA-Public Use
  Company Number: CH-BRISTOL-MYERS SQUIBB COMPANY-14856058

PATIENT
  Age: 66 Year
  Sex: Female

DRUGS (15)
  1. COAPROVEL [Suspect]
     Indication: ESSENTIAL HYPERTENSION
     Route: 048
     Dates: end: 20090121
  2. NEXIUM [Concomitant]
     Route: 048
  3. APROVEL [Concomitant]
     Route: 048
  4. DUPHALAC [Concomitant]
     Route: 048
  5. MORPHINE [Concomitant]
     Dosage: SHORT TERM.
     Route: 048
  6. DURAGESIC-100 [Concomitant]
     Route: 062
  7. TRAMAL [Concomitant]
     Dosage: 100-50-100
     Route: 048
  8. POTASSIUM CHLORIDE [Concomitant]
     Route: 048
  9. NOZINAN [Concomitant]
     Route: 048
  10. LAXOBERON [Concomitant]
     Route: 048
  11. PARAFFIN + PHENOLPHTHALEIN [Concomitant]
  12. DETRUSITOL [Concomitant]
     Route: 048
  13. TILUR [Concomitant]
     Route: 048
  14. DIAMICRON [Concomitant]
     Route: 048
  15. CALPEROS [Concomitant]
     Route: 048

REACTIONS (6)
  - FALL [None]
  - GENERAL PHYSICAL HEALTH DETERIORATION [None]
  - HYPOKALAEMIA [None]
  - HYPONATRAEMIA [None]
  - PNEUMONIA [None]
  - RESPIRATORY ALKALOSIS [None]
